FAERS Safety Report 13015834 (Version 1)
Quarter: 2016Q4

REPORT INFORMATION
  Report Type: Spontaneous
  Country: US (occurrence: US)
  Receive Date: 20161212
  Receipt Date: 20161212
  Transmission Date: 20170207
  Serious: No
  Sender: FDA-Public Use
  Company Number: US-DRREDDYS-USA/USA/16/0082670

PATIENT

DRUGS (2)
  1. LANSOPRAZOLE DELAYED-RELEASE CAPSULES [Suspect]
     Active Substance: LANSOPRAZOLE
     Indication: GASTROOESOPHAGEAL REFLUX DISEASE
     Route: 065
  2. LANSOPRAZOLE DELAYED-RELEASE CAPSULES [Suspect]
     Active Substance: LANSOPRAZOLE
     Indication: DYSPEPSIA

REACTIONS (2)
  - Drug ineffective [Unknown]
  - Product quality issue [Unknown]
